FAERS Safety Report 4638200-8 (Version None)
Quarter: 2005Q2

REPORT INFORMATION
  Report Type: 
  Country: None (occurrence: None)
  Receive Date: 20050415
  Receipt Date: 20050405
  Transmission Date: 20051028
  Serious: Yes (Hospitalization)
  Sender: FDA-Public Use
  Company Number: US015030

PATIENT
  Age: 30 Year
  Sex: Female
  Weight: 53.5244 kg

DRUGS (5)
  1. GABITRIL [Suspect]
     Indication: CHEST WALL PAIN
     Dosage: 32 MG ONCE ORAL
     Route: 048
     Dates: start: 20050331
  2. GABITRIL [Suspect]
     Indication: INSOMNIA
     Dosage: 32 MG ONCE ORAL
     Route: 048
     Dates: start: 20050331
  3. KLONODIN [Concomitant]
  4. LEXAPRO [Concomitant]
  5. VICODIN [Concomitant]

REACTIONS (5)
  - ACUTE PSYCHOSIS [None]
  - GASTROOESOPHAGEAL REFLUX DISEASE [None]
  - GRAND MAL CONVULSION [None]
  - INTENTIONAL MISUSE [None]
  - PATIENT RESTRAINT [None]
